FAERS Safety Report 14535158 (Version 2)
Quarter: 2018Q1

REPORT INFORMATION
  Report Type: Spontaneous
  Country: RU (occurrence: RU)
  Receive Date: 20180215
  Receipt Date: 20180220
  Transmission Date: 20180509
  Serious: Yes (Death)
  Sender: FDA-Public Use
  Company Number: RU-ABBVIE-18S-251-2258534-00

PATIENT
  Weight: 1.8 kg

DRUGS (1)
  1. SURVANTA [Suspect]
     Active Substance: BERACTANT
     Indication: ACUTE RESPIRATORY DISTRESS SYNDROME
     Route: 065
     Dates: start: 201706, end: 201706

REACTIONS (1)
  - Congenital anomaly [Fatal]

NARRATIVE: CASE EVENT DATE: 201706
